FAERS Safety Report 24424692 (Version 2)
Quarter: 2024Q4

REPORT INFORMATION
  Report Type: Spontaneous
  Country: IR (occurrence: IR)
  Receive Date: 20241010
  Receipt Date: 20241023
  Transmission Date: 20250115
  Serious: Yes (Death)
  Sender: BIOMARIN
  Company Number: IR-SA-2024SA290200

PATIENT

DRUGS (1)
  1. ALDURAZYME [Suspect]
     Active Substance: LARONIDASE
     Indication: Mucopolysaccharidosis I
     Dosage: 0.58 UNIT/KG
     Route: 065
     Dates: start: 2020, end: 202404

REACTIONS (1)
  - Respiratory disorder [Fatal]
